FAERS Safety Report 4593540-6 (Version None)
Quarter: 2005Q1

REPORT INFORMATION
  Report Type: 
  Country: None (occurrence: None)
  Receive Date: 20050224
  Receipt Date: 20040823
  Transmission Date: 20050727
  Serious: No
  Sender: FDA-Public Use
  Company Number: US-BRISTOL-MYERS SQUIBB COMPANY-12686317

PATIENT
  Age: 62 Year
  Sex: Female
  Weight: 90 kg

DRUGS (1)
  1. EXCEDRIN (MIGRAINE) [Suspect]
     Indication: MIGRAINE
     Route: 048
     Dates: start: 20040815, end: 20040815

REACTIONS (1)
  - DIZZINESS [None]
